FAERS Safety Report 4888208-2 (Version None)
Quarter: 2006Q1

REPORT INFORMATION
  Report Type: 
  Country: None (occurrence: None)
  Receive Date: 20060119
  Receipt Date: 20060110
  Transmission Date: 20060701
  Serious: Yes (Other)
  Sender: FDA-Public Use
  Company Number: 2006006734

PATIENT
  Age: 33 Year
  Sex: Female
  Weight: 123.832 kg

DRUGS (8)
  1. LYRICA [Suspect]
     Indication: NEUROPATHY
     Dosage: 150 MG (75 MG, 2 IN 1 D), ORAL
     Route: 048
     Dates: start: 20051201
  2. TOPAMAX [Suspect]
     Indication: ILL-DEFINED DISORDER
     Dosage: ORAL
     Route: 048
  3. HYDROCODONE BITARTRATE [Concomitant]
  4. SOMA [Concomitant]
  5. XANAX [Concomitant]
  6. CYMBALTA [Concomitant]
  7. ZOCOR [Concomitant]
  8. SEROQUEL [Concomitant]

REACTIONS (4)
  - DRUG ABUSER [None]
  - DRUG SCREEN POSITIVE [None]
  - IMPAIRED DRIVING ABILITY [None]
  - LOSS OF CONSCIOUSNESS [None]
